FAERS Safety Report 20371511 (Version 1)
Quarter: 2022Q1

REPORT INFORMATION
  Report Type: Spontaneous
  Country: CA (occurrence: CA)
  Receive Date: 20220124
  Receipt Date: 20220124
  Transmission Date: 20220423
  Serious: Yes (Death, Other)
  Sender: FDA-Public Use
  Company Number: CA-TEVA-2022-CA-2001355

PATIENT
  Age: 54 Year
  Sex: Male

DRUGS (65)
  1. ATAZANAVIR SULFATE [Interacting]
     Active Substance: ATAZANAVIR SULFATE
     Indication: Product used for unknown indication
     Route: 065
  2. ATAZANAVIR SULFATE [Interacting]
     Active Substance: ATAZANAVIR SULFATE
     Indication: HIV infection
     Route: 065
  3. ATAZANAVIR SULFATE [Interacting]
     Active Substance: ATAZANAVIR SULFATE
     Route: 048
  4. ATAZANAVIR SULFATE [Interacting]
     Active Substance: ATAZANAVIR SULFATE
     Route: 048
  5. BUPROPION [Interacting]
     Active Substance: BUPROPION
     Indication: Product used for unknown indication
     Route: 065
  6. BUPROPION [Interacting]
     Active Substance: BUPROPION
     Indication: Bipolar disorder
     Route: 065
  7. BUPROPION [Interacting]
     Active Substance: BUPROPION
     Route: 065
  8. BUPROPION [Interacting]
     Active Substance: BUPROPION
     Route: 065
  9. BUPROPION [Interacting]
     Active Substance: BUPROPION
     Route: 048
  10. BUPROPION [Interacting]
     Active Substance: BUPROPION
     Route: 048
  11. BUPROPION [Interacting]
     Active Substance: BUPROPION
     Route: 048
  12. BUPROPION [Interacting]
     Active Substance: BUPROPION
     Route: 048
  13. BUPROPION [Interacting]
     Active Substance: BUPROPION
     Route: 048
  14. BUPROPION [Interacting]
     Active Substance: BUPROPION
     Route: 048
  15. BUPROPION [Interacting]
     Active Substance: BUPROPION
     Route: 048
  16. BUPROPION [Interacting]
     Active Substance: BUPROPION
     Route: 048
  17. CLONAZEPAM [Interacting]
     Active Substance: CLONAZEPAM
     Indication: Bipolar disorder
     Route: 048
  18. QUETIAPINE FUMARATE [Interacting]
     Active Substance: QUETIAPINE FUMARATE
     Indication: Bipolar disorder
     Route: 048
  19. QUETIAPINE FUMARATE [Interacting]
     Active Substance: QUETIAPINE FUMARATE
     Route: 048
  20. QUETIAPINE FUMARATE [Interacting]
     Active Substance: QUETIAPINE FUMARATE
     Route: 048
  21. QUETIAPINE FUMARATE [Interacting]
     Active Substance: QUETIAPINE FUMARATE
     Route: 048
  22. SERTRALINE HYDROCHLORIDE [Interacting]
     Active Substance: SERTRALINE HYDROCHLORIDE
     Indication: Product used for unknown indication
     Route: 065
  23. SERTRALINE HYDROCHLORIDE [Interacting]
     Active Substance: SERTRALINE HYDROCHLORIDE
     Dosage: 800 MILLIGRAM DAILY;
     Route: 065
  24. ZOPICLONE [Interacting]
     Active Substance: ZOPICLONE
     Indication: Bipolar disorder
     Route: 065
  25. ZOPICLONE [Interacting]
     Active Substance: ZOPICLONE
     Indication: Product used for unknown indication
     Route: 065
  26. ZOPICLONE [Interacting]
     Active Substance: ZOPICLONE
     Route: 065
  27. ZOPICLONE [Interacting]
     Active Substance: ZOPICLONE
     Route: 065
  28. ZOPICLONE [Interacting]
     Active Substance: ZOPICLONE
     Route: 065
  29. ZOPICLONE [Interacting]
     Active Substance: ZOPICLONE
     Route: 065
  30. ZOPICLONE [Interacting]
     Active Substance: ZOPICLONE
     Route: 065
  31. ZOPICLONE [Interacting]
     Active Substance: ZOPICLONE
     Route: 065
  32. ZOPICLONE [Interacting]
     Active Substance: ZOPICLONE
     Route: 048
  33. ZOPICLONE [Interacting]
     Active Substance: ZOPICLONE
     Route: 048
  34. ZOPICLONE [Interacting]
     Active Substance: ZOPICLONE
     Route: 048
  35. ZOPICLONE [Interacting]
     Active Substance: ZOPICLONE
     Route: 048
  36. ATAZANAVIR SULFATE [Suspect]
     Active Substance: ATAZANAVIR SULFATE
     Indication: Product used for unknown indication
     Route: 005
  37. ATAZANAVIR SULFATE [Suspect]
     Active Substance: ATAZANAVIR SULFATE
     Indication: HIV infection
     Route: 005
  38. KALETRA [Suspect]
     Active Substance: LOPINAVIR\RITONAVIR
     Indication: HIV infection
     Route: 048
  39. LAMIVUDINE [Suspect]
     Active Substance: LAMIVUDINE
     Indication: HIV infection
     Route: 005
  40. RALTEGRAVIR POTASSIUM [Suspect]
     Active Substance: RALTEGRAVIR POTASSIUM
     Indication: Product used for unknown indication
     Route: 048
  41. RALTEGRAVIR POTASSIUM [Suspect]
     Active Substance: RALTEGRAVIR POTASSIUM
     Indication: HIV infection
     Route: 048
  42. RALTEGRAVIR POTASSIUM [Suspect]
     Active Substance: RALTEGRAVIR POTASSIUM
     Route: 048
  43. RALTEGRAVIR POTASSIUM [Suspect]
     Active Substance: RALTEGRAVIR POTASSIUM
     Route: 048
  44. RALTEGRAVIR POTASSIUM [Suspect]
     Active Substance: RALTEGRAVIR POTASSIUM
     Route: 048
  45. RALTEGRAVIR POTASSIUM [Suspect]
     Active Substance: RALTEGRAVIR POTASSIUM
     Route: 048
  46. RALTEGRAVIR POTASSIUM [Suspect]
     Active Substance: RALTEGRAVIR POTASSIUM
     Dosage: 800 MILLIGRAM DAILY;
     Route: 065
  47. RALTEGRAVIR POTASSIUM [Suspect]
     Active Substance: RALTEGRAVIR POTASSIUM
     Dosage: 800 MILLIGRAM DAILY;
     Route: 065
  48. RALTEGRAVIR POTASSIUM [Suspect]
     Active Substance: RALTEGRAVIR POTASSIUM
     Dosage: 800 MILLIGRAM DAILY;
     Route: 065
  49. RALTEGRAVIR POTASSIUM [Suspect]
     Active Substance: RALTEGRAVIR POTASSIUM
     Dosage: 800 MILLIGRAM DAILY;
     Route: 065
  50. RALTEGRAVIR POTASSIUM [Suspect]
     Active Substance: RALTEGRAVIR POTASSIUM
     Dosage: 800 MILLIGRAM DAILY;
     Route: 065
  51. RALTEGRAVIR POTASSIUM [Suspect]
     Active Substance: RALTEGRAVIR POTASSIUM
     Dosage: 800 MILLIGRAM DAILY;
     Route: 065
  52. RALTEGRAVIR POTASSIUM [Suspect]
     Active Substance: RALTEGRAVIR POTASSIUM
     Dosage: 800 MILLIGRAM DAILY;
     Route: 065
  53. RALTEGRAVIR POTASSIUM [Suspect]
     Active Substance: RALTEGRAVIR POTASSIUM
     Dosage: 800 MILLIGRAM DAILY;
     Route: 065
  54. SUSTIVA [Suspect]
     Active Substance: EFAVIRENZ
     Indication: Product used for unknown indication
     Route: 065
  55. SUSTIVA [Suspect]
     Active Substance: EFAVIRENZ
     Route: 048
  56. SUSTIVA [Suspect]
     Active Substance: EFAVIRENZ
     Dosage: 800 MILLIGRAM DAILY;
     Route: 048
  57. SUSTIVA [Suspect]
     Active Substance: EFAVIRENZ
     Dosage: 800 MILLIGRAM DAILY;
     Route: 048
  58. ENFUVIRTIDE [Concomitant]
     Active Substance: ENFUVIRTIDE
     Indication: Product used for unknown indication
     Route: 065
  59. ENFUVIRTIDE [Concomitant]
     Active Substance: ENFUVIRTIDE
     Route: 065
  60. ENFUVIRTIDE [Concomitant]
     Active Substance: ENFUVIRTIDE
     Route: 065
  61. ENFUVIRTIDE [Concomitant]
     Active Substance: ENFUVIRTIDE
     Route: 065
  62. ENFUVIRTIDE [Concomitant]
     Active Substance: ENFUVIRTIDE
     Indication: Product used for unknown indication
     Route: 065
  63. ENFUVIRTIDE [Concomitant]
     Active Substance: ENFUVIRTIDE
     Indication: HIV infection
     Route: 065
  64. ENFUVIRTIDE [Concomitant]
     Active Substance: ENFUVIRTIDE
     Route: 058
  65. ENFUVIRTIDE [Concomitant]
     Active Substance: ENFUVIRTIDE
     Route: 058

REACTIONS (5)
  - Depression [Fatal]
  - Loss of personal independence in daily activities [Fatal]
  - Drug interaction [Fatal]
  - Intentional product use issue [Fatal]
  - Prescribed overdose [Fatal]
